FAERS Safety Report 19570909 (Version 1)
Quarter: 2021Q3

REPORT INFORMATION
  Report Type: Other
  Country: US (occurrence: US)
  Receive Date: 20210716
  Receipt Date: 20210716
  Transmission Date: 20211014
  Serious: No
  Sender: FDA-Public Use
  Company Number: US-UROVANT SCIENCES GMBH-202104-URV-000149

PATIENT
  Sex: Female
  Weight: 45.35 kg

DRUGS (2)
  1. GEMTESA [Suspect]
     Active Substance: VIBEGRON
     Indication: HYPERTONIC BLADDER
  2. GEMTESA [Suspect]
     Active Substance: VIBEGRON
     Indication: URINARY INCONTINENCE
     Dosage: 75 MG, QD
     Route: 048
     Dates: start: 20210416

REACTIONS (2)
  - Diarrhoea [Unknown]
  - Cystitis bacterial [Unknown]
